FAERS Safety Report 8331629-6 (Version None)
Quarter: 2012Q2

REPORT INFORMATION
  Report Type: 
  Country: None (occurrence: None)
  Receive Date: 20120502
  Receipt Date: 20120420
  Transmission Date: 20120825
  Serious: No
  Sender: FDA-Public Use
  Company Number: US-AMGEN-USASP2012022658

PATIENT
  Age: 51 Year
  Sex: Female

DRUGS (4)
  1. ENBREL [Suspect]
     Indication: ANKYLOSING SPONDYLITIS
     Dosage: 50 MG, QWK
     Route: 058
     Dates: start: 20120327, end: 20120418
  2. SOMA [Concomitant]
     Dosage: UNK
  3. BENADRYL [Concomitant]
     Dosage: UNK
  4. LORCET-HD [Concomitant]
     Dosage: UNK

REACTIONS (22)
  - NERVOUSNESS [None]
  - HYPERHIDROSIS [None]
  - BLOOD PRESSURE DECREASED [None]
  - INJECTION SITE SWELLING [None]
  - INJECTION SITE ERYTHEMA [None]
  - INJECTION SITE PAIN [None]
  - CONTUSION [None]
  - EATING DISORDER [None]
  - COUGH [None]
  - FATIGUE [None]
  - VISUAL ACUITY REDUCED [None]
  - MUSCULOSKELETAL STIFFNESS [None]
  - RASH [None]
  - INJECTION SITE PRURITUS [None]
  - LARYNGITIS [None]
  - RESPIRATORY TRACT INFECTION [None]
  - CRYING [None]
  - INJECTION SITE REACTION [None]
  - PRURITUS GENERALISED [None]
  - DYSPHONIA [None]
  - PRODUCTIVE COUGH [None]
  - DRUG INEFFECTIVE [None]
